FAERS Safety Report 5234206-9 (Version None)
Quarter: 2007Q1

REPORT INFORMATION
  Report Type: 
  Country: None (occurrence: None)
  Receive Date: 20070207
  Receipt Date: 20070123
  Transmission Date: 20070707
  Serious: Yes (Death, Hospitalization)
  Sender: FDA-Public Use
  Company Number: 235492

PATIENT
  Age: 72 Year
  Sex: Male
  Weight: 77.9 kg

DRUGS (14)
  1. BEVACIZUMAB OR PLACEBO (BEVACIZUMAB) PWDR + SOLVENT, INFUSION SOLN, 10 [Suspect]
     Indication: NON-SMALL CELL LUNG CANCER
     Dosage: 1185 MG, Q3W, INTRAVENOUS
     Route: 042
     Dates: start: 20061218, end: 20070108
  2. ERLOTINIB(ERLOTINIB) TABLET [Suspect]
     Indication: NON-SMALL CELL LUNG CANCER
     Dosage: 150 MG, QD, ORAL
     Route: 048
     Dates: start: 20061218, end: 20070113
  3. PREDNISONE TAB [Concomitant]
  4. LISINOPRIL [Concomitant]
  5. ATENOLOL [Concomitant]
  6. SIMVASTATIN [Concomitant]
  7. ZETIA [Concomitant]
  8. OS-CAL (CALCIUM CARBONATE) [Concomitant]
  9. DOXYCYCLINE HYCLATE (DOXYCYCLINE HYCLATE) [Concomitant]
  10. AVELOX [Concomitant]
  11. POLYETHYLENE GLYCOL-ELECTROLYTE (POLYETHYLENE GLYCOL-ELECTROLYTE SOLUT [Concomitant]
  12. DULCOLAX [Concomitant]
  13. OXYCODONE HCL [Concomitant]
  14. ASPIRIN [Concomitant]

REACTIONS (7)
  - ACUTE RESPIRATORY DISTRESS SYNDROME [None]
  - CHEST PAIN [None]
  - DISEASE PROGRESSION [None]
  - PNEUMONIA [None]
  - PO2 DECREASED [None]
  - PYREXIA [None]
  - SPUTUM DISCOLOURED [None]
